FAERS Safety Report 6319292 (Version 3)
Quarter: 2020Q3

REPORT INFORMATION
  Report Type: Report from Study
  Country: AU (occurrence: AU)
  Receive Date: 20070524
  Receipt Date: 20091029
  Transmission Date: 20201104
  Serious: Yes (Hospitalization)
  Sender: FDA-Public Use
  Company Number: AU-JNJFOC-20070504423

PATIENT
  Age: 39 Year
  Sex: Male
  Weight: 82 kg

DRUGS (5)
  1. PALIPERIDONE. [Suspect]
     Active Substance: PALIPERIDONE
     Route: 048
  2. PALIPERIDONE. [Suspect]
     Active Substance: PALIPERIDONE
     Indication: SCHIZOPHRENIA
     Route: 048
  3. PALIPERIDONE. [Suspect]
     Active Substance: PALIPERIDONE
     Route: 048
  4. PHENYTOIN. [Concomitant]
     Active Substance: PHENYTOIN
  5. DIAZEPAM. [Concomitant]
     Active Substance: DIAZEPAM

REACTIONS (2)
  - Suicidal ideation [Recovered/Resolved]
  - Schizophrenia [Recovered/Resolved]

NARRATIVE: CASE EVENT DATE: 20070516
